FAERS Safety Report 11909282 (Version 1)
Quarter: 2016Q1

REPORT INFORMATION
  Report Type: Spontaneous
  Country: US (occurrence: US)
  Receive Date: 20160112
  Receipt Date: 20160112
  Transmission Date: 20160526
  Serious: No
  Sender: FDA-Public Use
  Company Number: US-TEVA-602937USA

PATIENT
  Sex: Female

DRUGS (5)
  1. SUMAVEL [Concomitant]
     Active Substance: SUMATRIPTAN SUCCINATE
  2. SUMATRIPTAN. [Concomitant]
     Active Substance: SUMATRIPTAN
  3. ZOMIG [Concomitant]
     Active Substance: ZOLMITRIPTAN
  4. DIVALPROEX [Concomitant]
     Active Substance: DIVALPROEX SODIUM
  5. ZECUITY [Suspect]
     Active Substance: SUMATRIPTAN SUCCINATE
     Route: 062

REACTIONS (1)
  - Drug ineffective [Unknown]
